FAERS Safety Report 8249971-6 (Version None)
Quarter: 2012Q2

REPORT INFORMATION
  Report Type: 
  Country: None (occurrence: None)
  Receive Date: 20120402
  Receipt Date: 20120323
  Transmission Date: 20120825
  Serious: Yes (Hospitalization)
  Sender: FDA-Public Use
  Company Number: US-JNJFOC-20120312669

PATIENT
  Age: 52 Year
  Sex: Female
  Weight: 68.04 kg

DRUGS (13)
  1. TOPAMAX [Suspect]
     Indication: ARTHRALGIA
     Route: 048
     Dates: start: 20110101, end: 20110101
  2. TOPAMAX [Suspect]
     Route: 048
     Dates: start: 20120101, end: 20120101
  3. TOPAMAX [Suspect]
     Route: 048
     Dates: start: 20110101, end: 20110101
  4. TOPAMAX [Suspect]
     Route: 048
     Dates: start: 20110101, end: 20120101
  5. TOPAMAX [Suspect]
     Route: 048
     Dates: start: 20110101, end: 20120101
  6. TOPAMAX [Suspect]
     Dosage: 50 MG IN THE MORINING AND 100 MG IN THE EVENING
     Route: 048
     Dates: start: 20120101
  7. FLEXERIL [Suspect]
     Indication: FIBROMYALGIA
     Route: 048
  8. TOPAMAX [Suspect]
     Route: 048
     Dates: start: 20120101, end: 20120101
  9. TOPAMAX [Suspect]
     Indication: FIBROMYALGIA
     Route: 048
     Dates: start: 20110801, end: 20110101
  10. TOPAMAX [Suspect]
     Dosage: 50 MG IN THE MORINING AND 100 MG IN THE EVENING
     Route: 048
     Dates: start: 20120101
  11. FLEXERIL [Suspect]
     Indication: ARTHRALGIA
     Route: 048
  12. TOPAMAX [Suspect]
     Route: 048
     Dates: start: 20110801, end: 20110101
  13. MOBIC [Concomitant]
     Indication: ARTHRITIS
     Route: 048

REACTIONS (8)
  - OSTEOARTHRITIS [None]
  - STAPHYLOCOCCAL INFECTION [None]
  - MEMORY IMPAIRMENT [None]
  - ADVERSE DRUG REACTION [None]
  - PAIN [None]
  - PANCREATIC DISORDER [None]
  - ALOPECIA [None]
  - VITAMIN D DECREASED [None]
